FAERS Safety Report 4705058-8 (Version None)
Quarter: 2005Q3

REPORT INFORMATION
  Report Type: 
  Country: None (occurrence: None)
  Receive Date: 20050701
  Receipt Date: 20050624
  Transmission Date: 20060218
  Serious: Yes (Hospitalization)
  Sender: FDA-Public Use
  Company Number: 2005CG01169

PATIENT
  Age: 55 Year
  Sex: Male

DRUGS (2)
  1. CRESTOR [Suspect]
     Indication: DYSLIPIDAEMIA
     Route: 048
     Dates: start: 20041001, end: 20050501
  2. PENTASA [Concomitant]
     Indication: GASTROINTESTINAL INFLAMMATION

REACTIONS (4)
  - AMYLOIDOSIS [None]
  - NEPHROTIC SYNDROME [None]
  - RENAL FAILURE [None]
  - WEIGHT INCREASED [None]
